FAERS Safety Report 13132401 (Version 1)
Quarter: 2017Q1

REPORT INFORMATION
  Report Type: Spontaneous
  Country: MX (occurrence: MX)
  Receive Date: 20170120
  Receipt Date: 20170120
  Transmission Date: 20170428
  Serious: Yes (Hospitalization, Other)
  Sender: FDA-Public Use
  Company Number: MX-UCBSA-2017002151

PATIENT
  Age: 67 Year
  Sex: Female

DRUGS (9)
  1. QUETIAPINE. [Suspect]
     Active Substance: QUETIAPINE
     Indication: DEPRESSION
     Dosage: 300 MG/DAILY
  2. PIRACETAM [Suspect]
     Active Substance: PIRACETAM
     Indication: OFF LABEL USE
  3. ATORVASTATIN [Concomitant]
     Active Substance: ATORVASTATIN
     Indication: DYSLIPIDAEMIA
     Dosage: 10 MG/DAY
  4. LEVETIRACETAM. [Suspect]
     Active Substance: LEVETIRACETAM
     Indication: DEPRESSION
     Dosage: 500 MG, 2X/DAY (BID)
  5. RALOXIFENE. [Suspect]
     Active Substance: RALOXIFENE
     Indication: DEPRESSION
     Dosage: 60 MG/DAY
  6. PIRACETAM [Suspect]
     Active Substance: PIRACETAM
     Indication: DEPRESSION
     Dosage: UNKNOWN DOSE
  7. DESVENLAFAXINE. [Suspect]
     Active Substance: DESVENLAFAXINE
     Indication: DEPRESSION
     Dosage: 50 MG/DAY
  8. LEVETIRACETAM. [Suspect]
     Active Substance: LEVETIRACETAM
     Indication: OFF LABEL USE
  9. NIFEDIPINE. [Suspect]
     Active Substance: NIFEDIPINE
     Indication: HYPERTENSION
     Dosage: 20 MG, 3X/DAY (TID)

REACTIONS (4)
  - Leukopenia [Unknown]
  - Colonic pseudo-obstruction [Recovered/Resolved]
  - Intestinal perforation [Recovered/Resolved]
  - Off label use [Unknown]
